FAERS Safety Report 8321457-X (Version None)
Quarter: 2012Q2

REPORT INFORMATION
  Report Type: 
  Country: None (occurrence: None)
  Receive Date: 20120430
  Receipt Date: 20120424
  Transmission Date: 20120825
  Serious: Yes (Hospitalization, Other)
  Sender: FDA-Public Use
  Company Number: US-PFIZER INC-2012101616

PATIENT
  Sex: Female

DRUGS (6)
  1. TRAZODONE [Concomitant]
     Indication: SLEEP APNOEA SYNDROME
     Dosage: 150 MG, DAILY
  2. AMLODIPINE [Concomitant]
     Indication: HYPERTENSION
     Dosage: 5 MG, 2X/DAY
  3. PRIMIDONE [Concomitant]
     Indication: TREMOR
     Dosage: 6 MG, DAILY
  4. METOPROLOL [Concomitant]
     Indication: HYPERTENSION
     Dosage: 50 MG, 2X/DAY
  5. OMEPRAZOLE [Concomitant]
     Indication: PROPHYLAXIS
     Dosage: 20 MG, DAILY
  6. EFFEXOR XR [Suspect]
     Indication: DEPRESSION
     Dosage: 75 MG, 2X/DAY

REACTIONS (7)
  - SPEECH DISORDER [None]
  - VISUAL IMPAIRMENT [None]
  - HEADACHE [None]
  - MYOCARDIAL INFARCTION [None]
  - HYPOTHYROIDISM [None]
  - CEREBROVASCULAR ACCIDENT [None]
  - HYPERTENSION [None]
